FAERS Safety Report 24259323 (Version 2)
Quarter: 2024Q3

REPORT INFORMATION
  Report Type: Spontaneous
  Country: DE (occurrence: DE)
  Receive Date: 20240828
  Receipt Date: 20240904
  Transmission Date: 20241016
  Serious: Yes (Death, Life-Threatening, Hospitalization, Other)
  Sender: GILEAD
  Company Number: None

PATIENT
  Age: 64 Year
  Sex: Male

DRUGS (2)
  1. TECARTUS [Suspect]
     Active Substance: BREXUCABTAGENE AUTOLEUCEL
     Indication: Mantle cell lymphoma stage I
     Route: 065
     Dates: start: 20221121
  2. LEVETIRACETAM [Concomitant]
     Active Substance: LEVETIRACETAM
     Indication: Immune effector cell-associated neurotoxicity syndrome

REACTIONS (5)
  - Hypotension [Fatal]
  - Immune effector cell-associated neurotoxicity syndrome [Fatal]
  - Pyrexia [Fatal]
  - Cytokine release syndrome [Fatal]
  - Dyspnoea [Fatal]

NARRATIVE: CASE EVENT DATE: 20221121
